FAERS Safety Report 5567299-X (Version None)
Quarter: 2007Q4

REPORT INFORMATION
  Report Type: 
  Country: None (occurrence: None)
  Receive Date: 20071219
  Receipt Date: 20070725
  Transmission Date: 20080405
  Serious: No
  Sender: FDA-Public Use
  Company Number: US-ABBOTT-07P-163-0375749-00

PATIENT
  Sex: Female

DRUGS (3)
  1. DILAUDID [Suspect]
     Indication: BACK PAIN
  2. DILAUDID [Suspect]
     Indication: ARTHRALGIA
  3. DILAUDID [Suspect]
     Indication: MULTIPLE SCLEROSIS

REACTIONS (1)
  - INADEQUATE ANALGESIA [None]
